FAERS Safety Report 7816861-X (Version None)
Quarter: 2011Q4

REPORT INFORMATION
  Report Type: 
  Country: None (occurrence: None)
  Receive Date: 20111017
  Receipt Date: 20110209
  Transmission Date: 20120403
  Serious: No
  Sender: FDA-Public Use
  Company Number: US-GLAXOSMITHKLINE-A0913216A

PATIENT
  Age: 70 Year
  Sex: Female
  Weight: 67.3 kg

DRUGS (8)
  1. MONTELUKAST SODIUM [Concomitant]
  2. HYDROXYCHLOROQUINE SULFATE [Concomitant]
  3. CEFTIN [Suspect]
     Indication: SINUSITIS
     Dosage: 500MG UNKNOWN
     Route: 065
     Dates: start: 20101201
  4. HUMIRA [Suspect]
     Indication: RHEUMATOID ARTHRITIS
     Dosage: 40MG UNKNOWN
     Route: 058
     Dates: start: 20100922
  5. METFORMIN HYDROCHLORIDE [Concomitant]
  6. RAMIPRIL [Concomitant]
  7. CETIRIZINE HCL [Concomitant]
  8. PREGABALIN [Concomitant]

REACTIONS (1)
  - DIARRHOEA [None]
